FAERS Safety Report 21663435 (Version 2)
Quarter: 2023Q1

REPORT INFORMATION
  Report Type: Spontaneous
  Country: US (occurrence: US)
  Receive Date: 20221130
  Receipt Date: 20230215
  Transmission Date: 20230418
  Serious: No
  Sender: FDA-Public Use
  Company Number: US-BRISTOL-MYERS SQUIBB COMPANY-2022-145471

PATIENT
  Age: 77 Year
  Sex: Male

DRUGS (1)
  1. REVLIMID [Suspect]
     Active Substance: LENALIDOMIDE
     Indication: Plasma cell myeloma
     Dosage: FREQUENCY- TAKE 1 CAPSULE BY ?MOUTH DAILY ON ?DAYS 1-14 OF ?EACH 28 DAY ?CYCLE. TAKE ?WHOLE WITH ?WA
     Route: 048

REACTIONS (3)
  - Diarrhoea [Unknown]
  - Off label use [Unknown]
  - Muscle spasms [Unknown]
